FAERS Safety Report 7012837-3 (Version None)
Quarter: 2010Q3

REPORT INFORMATION
  Report Type: 
  Country: None (occurrence: None)
  Receive Date: 20100924
  Receipt Date: 20100916
  Transmission Date: 20110219
  Serious: Yes (Hospitalization)
  Sender: FDA-Public Use
  Company Number: B0675978A

PATIENT
  Age: 86 Year
  Sex: Female

DRUGS (7)
  1. COROPRES [Suspect]
     Indication: ATRIAL FIBRILLATION
     Dosage: 3.125MG TWICE PER DAY
     Route: 048
     Dates: start: 20041025, end: 20100120
  2. LORAZEPAM [Concomitant]
  3. KARVEA [Concomitant]
     Dates: start: 20100120
  4. ESIDRIX [Concomitant]
     Dates: start: 20100120
  5. IDAPTAN [Concomitant]
  6. SINTROM [Concomitant]
  7. NOLOTIL [Concomitant]

REACTIONS (4)
  - ATRIAL FIBRILLATION [None]
  - COUGH [None]
  - DYSPNOEA [None]
  - PRODUCTIVE COUGH [None]
